FAERS Safety Report 5099354-5 (Version None)
Quarter: 2006Q3

REPORT INFORMATION
  Report Type: 
  Country: None (occurrence: None)
  Receive Date: 20060728
  Receipt Date: 20051121
  Transmission Date: 20061208
  Serious: Yes (Hospitalization)
  Sender: FDA-Public Use
  Company Number: US-JNJFOC-20050604914

PATIENT
  Age: 4 Year
  Sex: Female
  Weight: 43.5 kg

DRUGS (3)
  1. CHILDREN'S MOTRIN [Suspect]
     Indication: PYREXIA
     Dosage: 150 MG, 1 IN 1 DAY
     Dates: start: 20050316, end: 20050316
  2. PENICILLIN [Suspect]
     Indication: DRUG USE FOR UNKNOWN INDICATION
  3. AMOXICILLIN [Suspect]
     Indication: DRUG USE FOR UNKNOWN INDICATION
     Dates: start: 20050318, end: 20050320

REACTIONS (4)
  - COCCIDIOIDOMYCOSIS [None]
  - IMMUNE SYSTEM DISORDER [None]
  - LYMPHADENOPATHY [None]
  - STEVENS-JOHNSON SYNDROME [None]
